FAERS Safety Report 8334244-3 (Version None)
Quarter: 2012Q2

REPORT INFORMATION
  Report Type: 
  Country: None (occurrence: None)
  Receive Date: 20120503
  Receipt Date: 20120430
  Transmission Date: 20120825
  Serious: Yes (Hospitalization)
  Sender: FDA-Public Use
  Company Number: AT-GLAXOSMITHKLINE-B0799429A

PATIENT
  Age: 30 Month
  Sex: Female

DRUGS (1)
  1. LAMICTAL [Suspect]
     Indication: PRODUCT USED FOR UNKNOWN INDICATION
     Dosage: 300MG PER DAY
     Dates: start: 20111222

REACTIONS (4)
  - SINUS TACHYCARDIA [None]
  - DIZZINESS [None]
  - ACCIDENTAL EXPOSURE [None]
  - VOMITING [None]
